FAERS Safety Report 19854696 (Version 12)
Quarter: 2025Q1

REPORT INFORMATION
  Report Type: Spontaneous
  Country: CA (occurrence: CA)
  Receive Date: 20210920
  Receipt Date: 20250225
  Transmission Date: 20250408
  Serious: Yes (Death, Life-Threatening, Hospitalization, Disabling, Other)
  Sender: NOVARTIS
  Company Number: NVSC2021CA205965

PATIENT
  Age: 43 Year
  Sex: Female
  Weight: 68 kg

DRUGS (159)
  1. COSENTYX [Suspect]
     Active Substance: SECUKINUMAB
     Indication: Psoriatic arthropathy
     Route: 042
  2. COSENTYX [Suspect]
     Active Substance: SECUKINUMAB
     Indication: Rheumatoid arthritis
  3. ERELZI [Suspect]
     Active Substance: ETANERCEPT-SZZS
     Indication: Rheumatoid arthritis
     Dosage: 50 MG, QW
     Route: 065
  4. ERELZI [Suspect]
     Active Substance: ETANERCEPT-SZZS
     Route: 065
  5. ERELZI [Suspect]
     Active Substance: ETANERCEPT-SZZS
     Route: 058
  6. ERELZI [Suspect]
     Active Substance: ETANERCEPT-SZZS
     Route: 058
  7. ERELZI [Suspect]
     Active Substance: ETANERCEPT-SZZS
     Route: 065
  8. ERELZI [Suspect]
     Active Substance: ETANERCEPT-SZZS
     Dosage: UNK, QW
     Route: 065
  9. ERELZI [Suspect]
     Active Substance: ETANERCEPT-SZZS
     Dosage: 25 MG, QW
     Route: 065
  10. ERELZI [Suspect]
     Active Substance: ETANERCEPT-SZZS
     Dosage: 12.5 MG, QW
     Route: 065
  11. ADALIMUMAB [Suspect]
     Active Substance: ADALIMUMAB
     Indication: Rheumatoid arthritis
     Route: 058
  12. ADALIMUMAB [Suspect]
     Active Substance: ADALIMUMAB
     Route: 065
  13. ADALIMUMAB [Suspect]
     Active Substance: ADALIMUMAB
     Route: 065
  14. ADALIMUMAB [Suspect]
     Active Substance: ADALIMUMAB
     Route: 058
  15. ADALIMUMAB [Suspect]
     Active Substance: ADALIMUMAB
     Route: 058
  16. ADALIMUMAB [Suspect]
     Active Substance: ADALIMUMAB
     Dosage: 40 MG, QW
     Route: 058
  17. ADALIMUMAB [Suspect]
     Active Substance: ADALIMUMAB
     Route: 058
  18. HYDROCORTISONE ACETATE [Suspect]
     Active Substance: HYDROCORTISONE ACETATE
     Indication: Rheumatoid arthritis
     Route: 065
  19. HYDROCORTISONE ACETATE [Suspect]
     Active Substance: HYDROCORTISONE ACETATE
     Route: 048
  20. HYDROCORTISONE ACETATE [Suspect]
     Active Substance: HYDROCORTISONE ACETATE
     Route: 058
  21. DICLOFENAC [Suspect]
     Active Substance: DICLOFENAC
     Indication: Product used for unknown indication
     Route: 065
  22. DICLOFENAC [Suspect]
     Active Substance: DICLOFENAC
     Route: 065
  23. DICLOFENAC [Suspect]
     Active Substance: DICLOFENAC
     Route: 048
  24. DICLOFENAC DIETHYLAMINE [Suspect]
     Active Substance: DICLOFENAC DIETHYLAMINE
     Indication: Product used for unknown indication
     Route: 065
  25. ACETAMINOPHEN [Suspect]
     Active Substance: ACETAMINOPHEN
     Indication: Rheumatoid arthritis
     Route: 065
  26. ACETAMINOPHEN [Suspect]
     Active Substance: ACETAMINOPHEN
     Route: 065
  27. ACETAMINOPHEN [Suspect]
     Active Substance: ACETAMINOPHEN
     Route: 065
  28. ACETAMINOPHEN [Suspect]
     Active Substance: ACETAMINOPHEN
     Route: 065
  29. ACTEMRA [Suspect]
     Active Substance: TOCILIZUMAB
     Indication: Rheumatoid arthritis
     Route: 065
  30. ACTEMRA [Suspect]
     Active Substance: TOCILIZUMAB
     Route: 042
  31. ACTEMRA [Suspect]
     Active Substance: TOCILIZUMAB
     Route: 058
  32. ACTEMRA [Suspect]
     Active Substance: TOCILIZUMAB
     Route: 065
  33. ACTEMRA [Suspect]
     Active Substance: TOCILIZUMAB
     Route: 048
  34. ACTEMRA [Suspect]
     Active Substance: TOCILIZUMAB
     Route: 065
  35. ACTEMRA [Suspect]
     Active Substance: TOCILIZUMAB
     Route: 042
  36. ACTEMRA [Suspect]
     Active Substance: TOCILIZUMAB
     Route: 042
  37. ACTEMRA [Suspect]
     Active Substance: TOCILIZUMAB
     Route: 042
  38. ALENDRONATE SODIUM [Suspect]
     Active Substance: ALENDRONATE SODIUM
     Indication: Rheumatoid arthritis
     Route: 048
  39. ALENDRONATE SODIUM [Suspect]
     Active Substance: ALENDRONATE SODIUM
     Route: 065
  40. ALENDRONATE SODIUM [Suspect]
     Active Substance: ALENDRONATE SODIUM
     Route: 048
  41. ARAVA [Suspect]
     Active Substance: LEFLUNOMIDE
     Indication: Rheumatoid arthritis
     Dosage: 20 MG, QD
     Route: 048
  42. ARAVA [Suspect]
     Active Substance: LEFLUNOMIDE
     Route: 065
  43. ALENDRONIC ACID [Suspect]
     Active Substance: ALENDRONIC ACID
     Indication: Rheumatoid arthritis
     Route: 065
  44. ALENDRONIC ACID [Suspect]
     Active Substance: ALENDRONIC ACID
     Route: 048
  45. CETIRIZINE HYDROCHLORIDE [Suspect]
     Active Substance: CETIRIZINE HYDROCHLORIDE
     Indication: Rheumatoid arthritis
     Route: 065
  46. CETIRIZINE HYDROCHLORIDE [Suspect]
     Active Substance: CETIRIZINE HYDROCHLORIDE
     Indication: Off label use
     Route: 065
  47. CETIRIZINE HYDROCHLORIDE [Suspect]
     Active Substance: CETIRIZINE HYDROCHLORIDE
     Route: 065
  48. DIETARY SUPPLEMENT\MINERALS\VITAMINS [Suspect]
     Active Substance: DIETARY SUPPLEMENT\MINERALS\VITAMINS
     Indication: Product used for unknown indication
     Route: 065
  49. CHLORHEXIDINE [Suspect]
     Active Substance: CHLORHEXIDINE
     Indication: Product used for unknown indication
     Route: 002
  50. CHLORHEXIDINE [Suspect]
     Active Substance: CHLORHEXIDINE
     Route: 065
  51. CHLORHEXIDINE [Suspect]
     Active Substance: CHLORHEXIDINE
     Route: 065
  52. CORTISONE ACETATE [Suspect]
     Active Substance: CORTISONE ACETATE
     Indication: Rheumatoid arthritis
     Route: 065
  53. CIMZIA [Suspect]
     Active Substance: CERTOLIZUMAB PEGOL
     Indication: Rheumatoid arthritis
     Route: 058
  54. CIMZIA [Suspect]
     Active Substance: CERTOLIZUMAB PEGOL
     Indication: Psoriasis
     Route: 065
  55. CORTISONE ACETATE [Suspect]
     Active Substance: CORTISONE ACETATE
     Indication: Rheumatoid arthritis
     Route: 065
  56. CORTISONE ACETATE [Suspect]
     Active Substance: CORTISONE ACETATE
     Route: 065
  57. CORTISONE ACETATE [Suspect]
     Active Substance: CORTISONE ACETATE
     Route: 048
  58. CORTISONE ACETATE [Suspect]
     Active Substance: CORTISONE ACETATE
     Route: 048
  59. DESOXIMETASONE [Suspect]
     Active Substance: DESOXIMETASONE
     Indication: Rheumatoid arthritis
     Dosage: 25 MG, QW
     Route: 048
  60. DESOXIMETASONE [Suspect]
     Active Substance: DESOXIMETASONE
     Indication: Pemphigus
     Route: 003
  61. DESOXIMETASONE [Suspect]
     Active Substance: DESOXIMETASONE
     Route: 061
  62. DESOXIMETASONE [Suspect]
     Active Substance: DESOXIMETASONE
     Route: 048
  63. DESOXIMETASONE [Suspect]
     Active Substance: DESOXIMETASONE
     Route: 065
  64. ENBREL [Suspect]
     Active Substance: ETANERCEPT
     Indication: Rheumatoid arthritis
     Dosage: 20 MG, QW
     Route: 058
  65. ENBREL [Suspect]
     Active Substance: ETANERCEPT
     Indication: Psoriatic arthropathy
     Dosage: 50 MG, QW
     Route: 065
  66. ENBREL [Suspect]
     Active Substance: ETANERCEPT
     Route: 065
  67. ENBREL [Suspect]
     Active Substance: ETANERCEPT
     Route: 065
  68. ENBREL [Suspect]
     Active Substance: ETANERCEPT
     Route: 058
  69. ENBREL [Suspect]
     Active Substance: ETANERCEPT
     Route: 058
  70. ENBREL [Suspect]
     Active Substance: ETANERCEPT
     Route: 058
  71. ENBREL [Suspect]
     Active Substance: ETANERCEPT
     Route: 058
  72. GOLIMUMAB [Suspect]
     Active Substance: GOLIMUMAB
     Indication: Rheumatoid arthritis
     Route: 065
  73. GOLIMUMAB [Suspect]
     Active Substance: GOLIMUMAB
     Route: 065
  74. GOLIMUMAB [Suspect]
     Active Substance: GOLIMUMAB
     Route: 058
  75. HYDROXYCHLOROQUINE SULFATE [Suspect]
     Active Substance: HYDROXYCHLOROQUINE SULFATE
     Indication: Rheumatoid arthritis
     Route: 048
  76. HYDROXYCHLOROQUINE SULFATE [Suspect]
     Active Substance: HYDROXYCHLOROQUINE SULFATE
     Indication: Systemic lupus erythematosus
     Route: 065
  77. HYDROXYCHLOROQUINE SULFATE [Suspect]
     Active Substance: HYDROXYCHLOROQUINE SULFATE
     Dosage: 40 MG, QD
     Route: 066
  78. HYDROXYCHLOROQUINE SULFATE [Suspect]
     Active Substance: HYDROXYCHLOROQUINE SULFATE
     Dosage: 400 MG, QD
     Route: 066
  79. HYDROXYCHLOROQUINE SULFATE [Suspect]
     Active Substance: HYDROXYCHLOROQUINE SULFATE
     Dosage: 400 MG, QD
     Route: 065
  80. HYDROXYCHLOROQUINE SULFATE [Suspect]
     Active Substance: HYDROXYCHLOROQUINE SULFATE
     Dosage: 400 MG, QD
     Route: 048
  81. HYDROXYCHLOROQUINE SULFATE [Suspect]
     Active Substance: HYDROXYCHLOROQUINE SULFATE
     Route: 065
  82. HYDROXYCHLOROQUINE SULFATE [Suspect]
     Active Substance: HYDROXYCHLOROQUINE SULFATE
     Route: 048
  83. HYDROXYCHLOROQUINE SULFATE [Suspect]
     Active Substance: HYDROXYCHLOROQUINE SULFATE
     Route: 005
  84. INFLIXIMAB [Suspect]
     Active Substance: INFLIXIMAB
     Indication: Rheumatoid arthritis
     Route: 042
  85. INFLIXIMAB [Suspect]
     Active Substance: INFLIXIMAB
     Route: 042
  86. INFLIXIMAB [Suspect]
     Active Substance: INFLIXIMAB
     Route: 065
  87. INFLIXIMAB [Suspect]
     Active Substance: INFLIXIMAB
     Route: 065
  88. INFLIXIMAB [Suspect]
     Active Substance: INFLIXIMAB
     Route: 065
  89. INFLIXIMAB [Suspect]
     Active Substance: INFLIXIMAB
     Route: 065
  90. INFLIXIMAB [Suspect]
     Active Substance: INFLIXIMAB
     Route: 065
  91. ORENCIA [Suspect]
     Active Substance: ABATACEPT
     Indication: Rheumatoid arthritis
     Dosage: 3 MG, BID
     Route: 048
  92. ORENCIA [Suspect]
     Active Substance: ABATACEPT
     Route: 042
  93. ORENCIA [Suspect]
     Active Substance: ABATACEPT
     Route: 058
  94. OTEZLA [Suspect]
     Active Substance: APREMILAST
     Indication: Product used for unknown indication
     Dosage: 3 MG, BID
     Route: 048
  95. OTEZLA [Suspect]
     Active Substance: APREMILAST
     Route: 048
  96. PHTHALYLSULFATHIAZOLE [Suspect]
     Active Substance: PHTHALYLSULFATHIAZOLE
     Indication: Rheumatoid arthritis
     Route: 042
  97. PREDNISONE [Suspect]
     Active Substance: PREDNISONE
     Indication: Rheumatoid arthritis
     Route: 065
  98. PREDNISONE [Suspect]
     Active Substance: PREDNISONE
     Indication: Condition aggravated
     Route: 065
  99. PREDNISONE [Suspect]
     Active Substance: PREDNISONE
     Route: 065
  100. PSEUDOEPHEDRINE HYDROCHLORIDE [Suspect]
     Active Substance: PSEUDOEPHEDRINE HYDROCHLORIDE
     Indication: Rheumatoid arthritis
     Route: 065
  101. SULFASALAZINE [Suspect]
     Active Substance: SULFASALAZINE
     Indication: Rheumatoid arthritis
     Dosage: 1 G, BID
     Route: 065
  102. SULFASALAZINE [Suspect]
     Active Substance: SULFASALAZINE
     Route: 048
  103. SULFASALAZINE [Suspect]
     Active Substance: SULFASALAZINE
     Dosage: 1 G, QD
     Route: 065
  104. SULFASALAZINE [Suspect]
     Active Substance: SULFASALAZINE
     Dosage: 1000 MG, QD (DOSAGE FORM: NOT SPECIFIED)
     Route: 048
  105. SULFASALAZINE [Suspect]
     Active Substance: SULFASALAZINE
     Dosage: 500 MG, QD
     Route: 048
  106. SULFASALAZINE [Suspect]
     Active Substance: SULFASALAZINE
     Dosage: 2000 MG, QD (1000 MG BID)
     Route: 048
  107. SULFASALAZINE [Suspect]
     Active Substance: SULFASALAZINE
     Dosage: 500 MG, QD
     Route: 065
  108. SULFASALAZINE [Suspect]
     Active Substance: SULFASALAZINE
     Route: 048
  109. SULFASALAZINE [Suspect]
     Active Substance: SULFASALAZINE
     Route: 048
  110. SULFASALAZINE [Suspect]
     Active Substance: SULFASALAZINE
     Dosage: UNK, Q12H (1 EVERY 12 HOURS)
     Route: 048
  111. SULFASALAZINE [Suspect]
     Active Substance: SULFASALAZINE
     Dosage: 2 G, QD
     Route: 048
  112. SULFASALAZINE [Suspect]
     Active Substance: SULFASALAZINE
     Dosage: 250 MG, QD
     Route: 065
  113. SULFASALAZINE [Suspect]
     Active Substance: SULFASALAZINE
     Route: 065
  114. SULFASALAZINE [Suspect]
     Active Substance: SULFASALAZINE
     Route: 065
  115. SULFASALAZINE [Suspect]
     Active Substance: SULFASALAZINE
     Dosage: 1 G, QD (1 EVERY 5 DAYS)
     Route: 048
  116. SULFASALAZINE [Suspect]
     Active Substance: SULFASALAZINE
     Dosage: 1 G, QD
     Route: 048
  117. SULFASALAZINE [Suspect]
     Active Substance: SULFASALAZINE
     Route: 065
  118. SULFASALAZINE [Suspect]
     Active Substance: SULFASALAZINE
     Route: 065
  119. SULFASALAZINE [Suspect]
     Active Substance: SULFASALAZINE
     Route: 065
  120. SULFASALAZINE [Suspect]
     Active Substance: SULFASALAZINE
     Route: 048
  121. SULFASALAZINE [Suspect]
     Active Substance: SULFASALAZINE
     Route: 048
  122. TOCILIZUMAB [Suspect]
     Active Substance: TOCILIZUMAB
     Indication: Rheumatoid arthritis
     Route: 058
  123. TOCILIZUMAB [Suspect]
     Active Substance: TOCILIZUMAB
     Dosage: 5 MG, QW
     Route: 048
  124. TOCILIZUMAB [Suspect]
     Active Substance: TOCILIZUMAB
     Dosage: 5 MG, QD
     Route: 048
  125. TOCILIZUMAB [Suspect]
     Active Substance: TOCILIZUMAB
     Route: 005
  126. TOCILIZUMAB [Suspect]
     Active Substance: TOCILIZUMAB
     Route: 065
  127. TOCILIZUMAB [Suspect]
     Active Substance: TOCILIZUMAB
     Route: 065
  128. TOCILIZUMAB [Suspect]
     Active Substance: TOCILIZUMAB
     Route: 042
  129. TOFACITINIB [Suspect]
     Active Substance: TOFACITINIB
     Indication: Rheumatoid arthritis
     Dosage: 5 MG, QW
     Route: 048
  130. TOFACITINIB [Suspect]
     Active Substance: TOFACITINIB
     Dosage: 5 MG, QD
     Route: 048
  131. TOFACITINIB [Suspect]
     Active Substance: TOFACITINIB
     Route: 048
  132. TOFACITINIB [Suspect]
     Active Substance: TOFACITINIB
     Route: 048
  133. TOFACITINIB CITRATE [Suspect]
     Active Substance: TOFACITINIB CITRATE
     Indication: Rheumatoid arthritis
     Dosage: 5 MG, BID
     Route: 065
  134. TOFACITINIB CITRATE [Suspect]
     Active Substance: TOFACITINIB CITRATE
     Dosage: 5 MG, QW
     Route: 048
  135. TOPICORT [Suspect]
     Active Substance: DESOXIMETASONE
     Indication: Rheumatoid arthritis
     Route: 048
  136. TOPICORT [Suspect]
     Active Substance: DESOXIMETASONE
     Route: 058
  137. TOPICORT [Suspect]
     Active Substance: DESOXIMETASONE
     Route: 003
  138. LEVOTHYROXINE SODIUM [Concomitant]
     Active Substance: LEVOTHYROXINE SODIUM
     Indication: Product used for unknown indication
     Route: 065
  139. CALCIUM GLUCONATE [Concomitant]
     Active Substance: CALCIUM GLUCONATE
     Indication: Product used for unknown indication
     Route: 065
  140. SULFASALAZINE [Concomitant]
     Active Substance: SULFASALAZINE
     Indication: Product used for unknown indication
     Dosage: 1 G, QD
     Route: 048
  141. SULFASALAZINE [Concomitant]
     Active Substance: SULFASALAZINE
     Dosage: 1 G, BID
     Route: 048
  142. SULFASALAZINE [Concomitant]
     Active Substance: SULFASALAZINE
     Route: 065
  143. MELOXICAM [Concomitant]
     Active Substance: MELOXICAM
     Indication: Product used for unknown indication
     Route: 065
  144. QUETIAPINE [Concomitant]
     Active Substance: QUETIAPINE
     Indication: Product used for unknown indication
     Route: 065
  145. RISEDRONATE SODIUM [Concomitant]
     Active Substance: RISEDRONATE SODIUM
     Indication: Product used for unknown indication
     Route: 065
  146. VITAMIN D3 [Concomitant]
     Active Substance: CHOLECALCIFEROL
     Indication: Product used for unknown indication
     Route: 065
  147. MAGNESIUM [Concomitant]
     Active Substance: MAGNESIUM
     Indication: Product used for unknown indication
     Route: 065
  148. ACETAMINOPHEN [Concomitant]
     Active Substance: ACETAMINOPHEN
     Indication: Product used for unknown indication
     Route: 065
  149. CETIRIZINE [Concomitant]
     Active Substance: CETIRIZINE HYDROCHLORIDE
     Indication: Product used for unknown indication
     Route: 065
  150. DICLOFENAC POTASSIUM [Concomitant]
     Active Substance: DICLOFENAC POTASSIUM
     Indication: Product used for unknown indication
     Route: 065
  151. DIETHYLAMINE SALICYLATE [Concomitant]
     Active Substance: DIETHYLAMINE SALICYLATE
     Indication: Product used for unknown indication
     Route: 065
  152. LEFLUNOMIDE [Concomitant]
     Active Substance: LEFLUNOMIDE
     Indication: Product used for unknown indication
     Route: 065
  153. CHOLECALCIFEROL [Concomitant]
     Active Substance: CHOLECALCIFEROL
     Indication: Product used for unknown indication
     Route: 065
  154. CAFFEINE CITRATE [Concomitant]
     Active Substance: CAFFEINE CITRATE
     Indication: Fatigue
     Route: 065
  155. CAFFEINE CITRATE [Concomitant]
     Active Substance: CAFFEINE CITRATE
     Route: 065
  156. DEXAMETHASONE [Concomitant]
     Active Substance: DEXAMETHASONE
     Indication: Product used for unknown indication
     Route: 065
  157. LEVOCABASTINE HYDROCHLORIDE [Concomitant]
     Active Substance: LEVOCABASTINE HYDROCHLORIDE
     Indication: Product used for unknown indication
     Route: 065
  158. MAGNESIUM CARBONATE [Concomitant]
     Active Substance: MAGNESIUM CARBONATE
     Indication: Product used for unknown indication
     Route: 065
  159. SYNTHROID [Concomitant]
     Active Substance: LEVOTHYROXINE SODIUM
     Indication: Product used for unknown indication
     Route: 065

REACTIONS (41)
  - Urticaria [Fatal]
  - Asthenia [Fatal]
  - Asthma [Fatal]
  - Chest pain [Fatal]
  - Gait inability [Fatal]
  - Lower limb fracture [Fatal]
  - Prescribed underdose [Fatal]
  - Road traffic accident [Fatal]
  - Off label use [Fatal]
  - Wound [Not Recovered/Not Resolved]
  - Anti-cyclic citrullinated peptide antibody positive [Not Recovered/Not Resolved]
  - Arthralgia [Not Recovered/Not Resolved]
  - Arthropathy [Not Recovered/Not Resolved]
  - Blood cholesterol increased [Not Recovered/Not Resolved]
  - Condition aggravated [Not Recovered/Not Resolved]
  - Decreased appetite [Not Recovered/Not Resolved]
  - Discomfort [Not Recovered/Not Resolved]
  - Fatigue [Not Recovered/Not Resolved]
  - General physical health deterioration [Not Recovered/Not Resolved]
  - Glossodynia [Not Recovered/Not Resolved]
  - Hand deformity [Not Recovered/Not Resolved]
  - Hypoaesthesia [Not Recovered/Not Resolved]
  - Joint swelling [Not Recovered/Not Resolved]
  - Malaise [Not Recovered/Not Resolved]
  - Mobility decreased [Not Recovered/Not Resolved]
  - Adverse drug reaction [Not Recovered/Not Resolved]
  - Musculoskeletal stiffness [Not Recovered/Not Resolved]
  - Pain [Not Recovered/Not Resolved]
  - Pemphigus [Not Recovered/Not Resolved]
  - Pericarditis [Not Recovered/Not Resolved]
  - Rheumatic fever [Not Recovered/Not Resolved]
  - Rheumatoid arthritis [Not Recovered/Not Resolved]
  - Rheumatoid factor positive [Not Recovered/Not Resolved]
  - Swelling [Not Recovered/Not Resolved]
  - Swollen joint count increased [Not Recovered/Not Resolved]
  - Synovitis [Not Recovered/Not Resolved]
  - Exposure during pregnancy [Unknown]
  - Maternal exposure during pregnancy [Unknown]
  - Therapeutic product effect decreased [Not Recovered/Not Resolved]
  - Treatment failure [Not Recovered/Not Resolved]
  - Drug ineffective [Not Recovered/Not Resolved]
